FAERS Safety Report 23168545 (Version 1)
Quarter: 2023Q4

REPORT INFORMATION
  Report Type: Spontaneous
  Country: ES (occurrence: ES)
  Receive Date: 20231110
  Receipt Date: 20231110
  Transmission Date: 20240110
  Serious: Yes (Other)
  Sender: FDA-Public Use
  Company Number: ES-JNJFOC-20231108722

PATIENT

DRUGS (1)
  1. IMBRUVICA [Suspect]
     Active Substance: IBRUTINIB
     Indication: Chronic lymphocytic leukaemia
     Route: 048

REACTIONS (12)
  - Deep vein thrombosis [Unknown]
  - Hypertension [Unknown]
  - Hepatotoxicity [Unknown]
  - Herpes zoster [Unknown]
  - Toxicity to various agents [Unknown]
  - Atrial fibrillation [Unknown]
  - Cardiac failure [Unknown]
  - Diarrhoea [Unknown]
  - Pulmonary toxicity [Unknown]
  - Haemorrhagic stroke [Unknown]
  - Haemorrhage [Unknown]
  - Infection [Unknown]
